FAERS Safety Report 5789146-3 (Version None)
Quarter: 2008Q2

REPORT INFORMATION
  Report Type: 
  Country: None (occurrence: None)
  Receive Date: 20080626
  Receipt Date: 20080619
  Transmission Date: 20081010
  Serious: No
  Sender: FDA-Public Use
  Company Number: DE-ELI_LILLY_AND_COMPANY-DE200806004300

PATIENT
  Sex: Female

DRUGS (2)
  1. YENTREVE [Suspect]
     Indication: STRESS URINARY INCONTINENCE
     Dosage: 0.5 D/F, 2/D
     Route: 048
     Dates: start: 20060501, end: 20080201
  2. FEMOSTON [Concomitant]
     Indication: MENOPAUSE
     Dosage: 1 D/F, DAILY (1/D)
     Route: 048
     Dates: start: 20031201

REACTIONS (3)
  - ABDOMINAL PAIN UPPER [None]
  - LIVER FUNCTION TEST ABNORMAL [None]
  - WEIGHT INCREASED [None]
